FAERS Safety Report 4928516-X (Version None)
Quarter: 2006Q1

REPORT INFORMATION
  Report Type: 
  Country: None (occurrence: None)
  Receive Date: 20060223
  Receipt Date: 20060210
  Transmission Date: 20060701
  Serious: Yes (Hospitalization, Other)
  Sender: FDA-Public Use
  Company Number: HQWYE541427JAN06

PATIENT
  Age: 38 Year
  Sex: Female

DRUGS (4)
  1. VENLAFAXINE HCL [Suspect]
     Dosage: OVERDOSE AMOUNT UNKNOWN - ^WITHIN THERAPEUTIC RANGE^, ORAL
     Route: 048
     Dates: start: 20050125, end: 20050125
  2. VALPROATE SODIUM [Suspect]
     Dosage: OVERDOSE AMOUNT UNKNOWN - ^WITHIN THERAPEUTIC RANGE^, ORAL
     Route: 048
     Dates: start: 20060125, end: 20060125
  3. LAMOTRIGINE [Suspect]
     Dosage: OVERDOSE AMOUNT UNKNOWN - ^WITHIN THERAPEUTIC RANGE^, ORAL
     Route: 048
     Dates: start: 20060125, end: 20060125
  4. CLONAZEPAM [Suspect]
     Dosage: OVERDOSE AMOUNT UNKNOWN - ^WITHIN THERAPEUTIC RANGE^, ORAL
     Route: 048
     Dates: start: 20060125, end: 20060125

REACTIONS (3)
  - FATIGUE [None]
  - INTENTIONAL OVERDOSE [None]
  - SOMNOLENCE [None]
